FAERS Safety Report 5669317-7 (Version None)
Quarter: 2008Q1

REPORT INFORMATION
  Report Type: 
  Country: None (occurrence: None)
  Receive Date: 20080317
  Receipt Date: 20080307
  Transmission Date: 20080703
  Serious: Yes (Other)
  Sender: FDA-Public Use
  Company Number: PHHY2008AU02790

PATIENT
  Sex: Female

DRUGS (2)
  1. ZOMETA [Suspect]
  2. AREDIA [Suspect]

REACTIONS (2)
  - MULTIPLE MYELOMA [None]
  - OSTEONECROSIS [None]
